FAERS Safety Report 19026134 (Version 1)
Quarter: 2021Q1

REPORT INFORMATION
  Report Type: Spontaneous
  Country: US (occurrence: US)
  Receive Date: 20210318
  Receipt Date: 20210318
  Transmission Date: 20210420
  Serious: Yes (Life-Threatening, Hospitalization)
  Sender: FDA-Public Use
  Company Number: None

PATIENT
  Age: 80 Year
  Sex: Female
  Weight: 57 kg

DRUGS (2)
  1. TOFACITINIB [Concomitant]
     Active Substance: TOFACITINIB
     Dates: start: 20200916, end: 20210318
  2. TOFACITINIB [Suspect]
     Active Substance: TOFACITINIB
     Indication: RHEUMATOID ARTHRITIS
     Route: 048
     Dates: start: 20200915, end: 20210318

REACTIONS (3)
  - Chronic obstructive pulmonary disease [None]
  - Lung neoplasm malignant [None]
  - Dyspnoea [None]

NARRATIVE: CASE EVENT DATE: 20210310
